FAERS Safety Report 4596412-6 (Version None)
Quarter: 2005Q1

REPORT INFORMATION
  Report Type: 
  Country: None (occurrence: None)
  Receive Date: 20050228
  Receipt Date: 20050219
  Transmission Date: 20050727
  Serious: Yes (Other)
  Sender: FDA-Public Use
  Company Number: 163-20785-05020398

PATIENT
  Sex: Male

DRUGS (1)
  1. THALOMID [Suspect]
     Indication: NEOPLASM MALIGNANT
     Dosage: 150 MG, DAILY, ORAL
     Route: 048
     Dates: start: 20040401, end: 20050214

REACTIONS (1)
  - HALLUCINATION, VISUAL [None]
